FAERS Safety Report 9496119 (Version 1)
Quarter: 2013Q3

REPORT INFORMATION
  Report Type: Report from Study
  Country: US (occurrence: US)
  Receive Date: 20130904
  Receipt Date: 20130904
  Transmission Date: 20140515
  Serious: Yes (Hospitalization, Other)
  Sender: FDA-Public Use
  Company Number: US-ROCHE-1270037

PATIENT
  Age: 37 Year
  Sex: Male
  Weight: 93.07 kg

DRUGS (1)
  1. XOLAIR [Suspect]
     Indication: ASTHMA
     Route: 058
     Dates: start: 2013

REACTIONS (1)
  - Chronic obstructive pulmonary disease [Unknown]
